FAERS Safety Report 8489530-3 (Version None)
Quarter: 2012Q3

REPORT INFORMATION
  Report Type: 
  Country: None (occurrence: None)
  Receive Date: 20120705
  Receipt Date: 20120621
  Transmission Date: 20120928
  Serious: Yes (Death, Other)
  Sender: FDA-Public Use
  Company Number: GB-UCBSA-053322

PATIENT
  Age: 37 Year
  Sex: Male

DRUGS (3)
  1. LAMOTRIGINE [Concomitant]
     Indication: EPILEPSY
     Dosage: DAILY DOSE: 700 MG,200/300 MG
     Route: 048
  2. PIRACETAM [Concomitant]
     Indication: EPILEPSY
     Dosage: DOSE NOT SURE
     Route: 048
     Dates: start: 19951201
  3. VIMPAT [Suspect]
     Indication: EPILEPSY
     Route: 048
     Dates: start: 20020701

REACTIONS (2)
  - CARDIAC ARREST [None]
  - GRAND MAL CONVULSION [None]
